FAERS Safety Report 13342948 (Version 1)
Quarter: 2017Q1

REPORT INFORMATION
  Report Type: Report from Study
  Country: US (occurrence: US)
  Receive Date: 20170316
  Receipt Date: 20170316
  Transmission Date: 20170428
  Serious: Yes (Hospitalization)
  Sender: FDA-Public Use
  Company Number: US-ACTELION-A-US2017-150897

PATIENT
  Age: 88 Year
  Sex: Female

DRUGS (11)
  1. FENOFIBRATE. [Concomitant]
     Active Substance: FENOFIBRATE
  2. FUROSEMIDE. [Concomitant]
     Active Substance: FUROSEMIDE
  3. LANSOPRAZOLE. [Concomitant]
     Active Substance: LANSOPRAZOLE
  4. SERTRALINE [Concomitant]
     Active Substance: SERTRALINE HYDROCHLORIDE
  5. ELIQUIS [Concomitant]
     Active Substance: APIXABAN
  6. GABAPENTIN. [Concomitant]
     Active Substance: GABAPENTIN
  7. DIGOXIN. [Concomitant]
     Active Substance: DIGOXIN
  8. TRACLEER [Suspect]
     Active Substance: BOSENTAN
     Indication: PULMONARY ARTERIAL HYPERTENSION
     Dosage: 125 MG, BID
     Route: 048
     Dates: start: 20070601
  9. LORAZEPAM. [Concomitant]
     Active Substance: LORAZEPAM
  10. NYSTATIN. [Concomitant]
     Active Substance: NYSTATIN
  11. LIPITOR [Concomitant]
     Active Substance: ATORVASTATIN CALCIUM

REACTIONS (3)
  - Asthenia [Recovering/Resolving]
  - Urinary tract infection [Recovering/Resolving]
  - Abasia [Recovering/Resolving]

NARRATIVE: CASE EVENT DATE: 20170301
